FAERS Safety Report 9670733 (Version 1)
Quarter: 2013Q4

REPORT INFORMATION
  Report Type: Report from Study
  Country: AT (occurrence: AT)
  Receive Date: 20131106
  Receipt Date: 20131106
  Transmission Date: 20140711
  Serious: Yes (Hospitalization)
  Sender: FDA-Public Use
  Company Number: AT-JNJFOC-20131101566

PATIENT
  Age: 69 Year
  Sex: Male
  Weight: 109 kg

DRUGS (13)
  1. XARELTO [Suspect]
     Indication: ATRIAL FIBRILLATION
     Route: 048
     Dates: start: 20130801
  2. XARELTO [Suspect]
     Indication: CEREBROVASCULAR ACCIDENT PROPHYLAXIS
     Route: 048
     Dates: start: 20130801
  3. EXFORGE [Concomitant]
     Route: 065
     Dates: start: 20130726
  4. DILATREND [Concomitant]
     Route: 065
     Dates: start: 20131024
  5. ALLOPURINOL [Concomitant]
     Route: 065
  6. KALIUMCHLORID [Concomitant]
     Route: 065
  7. ALNA RETARD [Concomitant]
     Route: 065
  8. ITERIUM [Concomitant]
     Route: 065
  9. ATORVASTATIN [Concomitant]
     Route: 065
  10. NOVALGIN [Concomitant]
     Route: 065
     Dates: start: 20131024
  11. MAGNESIUM VERLA [Concomitant]
     Route: 065
  12. TEBOFORTAN [Concomitant]
     Route: 065
     Dates: start: 20130718
  13. THROMBO ASS [Concomitant]
     Route: 065
     Dates: start: 20131024

REACTIONS (1)
  - Aortic aneurysm rupture [Recovered/Resolved]
